FAERS Safety Report 25369605 (Version 1)
Quarter: 2025Q2

REPORT INFORMATION
  Report Type: Spontaneous
  Country: US (occurrence: US)
  Receive Date: 20250528
  Receipt Date: 20250528
  Transmission Date: 20250716
  Serious: No
  Sender: VERTEX
  Company Number: US-VERTEX PHARMACEUTICALS-2024-011222

PATIENT
  Age: 35 Year
  Sex: Female
  Weight: 79 kg

DRUGS (2)
  1. TRIKAFTA [Suspect]
     Active Substance: ELEXACAFTOR\IVACAFTOR\TEZACAFTOR
     Indication: Cystic fibrosis
     Route: 048
     Dates: start: 20231020
  2. TRIKAFTA [Suspect]
     Active Substance: ELEXACAFTOR\IVACAFTOR\TEZACAFTOR
     Dosage: 1 ORANGE PILL IN MORNING
     Route: 048
     Dates: start: 20240131

REACTIONS (9)
  - Weight increased [Not Recovered/Not Resolved]
  - Alanine aminotransferase increased [Unknown]
  - Aspartate aminotransferase increased [Unknown]
  - Heavy menstrual bleeding [Unknown]
  - Memory impairment [Unknown]
  - Aphasia [Unknown]
  - Photosensitivity reaction [Not Recovered/Not Resolved]
  - Miliaria [Not Recovered/Not Resolved]
  - Infective pulmonary exacerbation of cystic fibrosis [Unknown]

NARRATIVE: CASE EVENT DATE: 20240501
